FAERS Safety Report 7384699-6 (Version None)
Quarter: 2011Q1

REPORT INFORMATION
  Report Type: 
  Country: None (occurrence: None)
  Receive Date: 20110330
  Receipt Date: 20110318
  Transmission Date: 20110831
  Serious: Yes (Hospitalization, Other)
  Sender: FDA-Public Use
  Company Number: PHHY2011BR22850

PATIENT
  Sex: Female

DRUGS (4)
  1. SERETIDE [Concomitant]
     Dosage: 500 MG, BID
  2. DIOVAN [Suspect]
     Indication: HYPERTENSION
     Dosage: 160 MG, QD
     Route: 048
  3. NATRILIX [Suspect]
  4. GLUCOFORMIN [Concomitant]

REACTIONS (2)
  - PNEUMONIA [None]
  - DIABETES MELLITUS [None]
